FAERS Safety Report 10228773 (Version 1)
Quarter: 2014Q2

REPORT INFORMATION
  Report Type: Spontaneous
  Country: US (occurrence: US)
  Receive Date: 20140610
  Receipt Date: 20140610
  Transmission Date: 20141212
  Serious: Yes (Hospitalization, Other)
  Sender: FDA-Public Use
  Company Number: US-GILEAD-2014-0104786

PATIENT
  Age: 76 Year
  Sex: Female

DRUGS (18)
  1. LETAIRIS [Suspect]
     Indication: PULMONARY ARTERIAL HYPERTENSION
     Dosage: 10 MG, QD
     Route: 065
     Dates: start: 20110913
  2. SEVELAMER [Concomitant]
  3. HYDROCODONE/APAP [Concomitant]
  4. BUMETANIDE [Concomitant]
  5. CULTURELLE [Concomitant]
  6. METRONIDAZOLE [Concomitant]
  7. PREDNISONE [Concomitant]
  8. HYDRALAZINE [Concomitant]
  9. BENICAR [Concomitant]
  10. MYCOPHENOLATE [Concomitant]
  11. CALCITRIOL [Concomitant]
  12. ULORIC [Concomitant]
  13. WARFARIN [Concomitant]
  14. FUROSEMIDE [Concomitant]
  15. ZETIA [Concomitant]
  16. ADCIRCA [Concomitant]
  17. NASONEX [Concomitant]
  18. ROCALTROL [Concomitant]

REACTIONS (2)
  - Renal failure [Not Recovered/Not Resolved]
  - Bacterial infection [Unknown]
